FAERS Safety Report 11550128 (Version 4)
Quarter: 2015Q4

REPORT INFORMATION
  Report Type: Spontaneous
  Country: FI (occurrence: FI)
  Receive Date: 20150924
  Receipt Date: 20151015
  Transmission Date: 20160304
  Serious: Yes (Other)
  Sender: FDA-Public Use
  Company Number: PHHY2015FI113596

PATIENT
  Sex: Male

DRUGS (2)
  1. TRILEPTAL [Suspect]
     Active Substance: OXCARBAZEPINE
     Indication: EPILEPSY
     Dosage: 0.7 ML, BID (IN THE MORNING AND EVENING)
     Route: 048
     Dates: start: 20150519
  2. TRILEPTAL [Suspect]
     Active Substance: OXCARBAZEPINE
     Dosage: DOSE INCREASED
     Dates: start: 2015

REACTIONS (4)
  - Seizure [Recovered/Resolved]
  - Apnoea [Recovered/Resolved]
  - Drug ineffective [Unknown]
  - Wrong technique in product usage process [Unknown]

NARRATIVE: CASE EVENT DATE: 2015
